FAERS Safety Report 22359484 (Version 1)
Quarter: 2023Q2

REPORT INFORMATION
  Report Type: Spontaneous
  Country: US (occurrence: None)
  Receive Date: 20230523
  Receipt Date: 20230523
  Transmission Date: 20230721
  Serious: No
  Sender: FDA-Public Use
  Company Number: None

PATIENT
  Age: 27 Year
  Sex: Female
  Weight: 72.9 kg

DRUGS (1)
  1. HUMIRA [Suspect]
     Active Substance: ADALIMUMAB
     Dosage: FREQUENCY : EVERY OTHER WEEK;?
     Route: 058
     Dates: start: 20230504

REACTIONS (5)
  - Nonspecific reaction [None]
  - Injection site erythema [None]
  - Injection site mass [None]
  - Injection site pruritus [None]
  - Injection site warmth [None]

NARRATIVE: CASE EVENT DATE: 20230522
